FAERS Safety Report 8599813-4 (Version None)
Quarter: 2012Q3

REPORT INFORMATION
  Report Type: 
  Country: None (occurrence: None)
  Receive Date: 20120816
  Receipt Date: 20120808
  Transmission Date: 20120928
  Serious: No
  Sender: FDA-Public Use
  Company Number: US-ASTRAZENECA-2012SE53732

PATIENT
  Age: 67 Year
  Sex: Female

DRUGS (4)
  1. NEXIUM [Suspect]
     Route: 048
  2. TRICOR [Concomitant]
  3. PRILOSEC OTC [Suspect]
     Route: 048
  4. OMEPRAZOLE [Suspect]
     Route: 048

REACTIONS (10)
  - CHEST PAIN [None]
  - DRUG DOSE OMISSION [None]
  - DRUG INEFFECTIVE [None]
  - DYSPEPSIA [None]
  - INTENTIONAL DRUG MISUSE [None]
  - EROSIVE OESOPHAGITIS [None]
  - MALAISE [None]
  - BURNING SENSATION [None]
  - COUGH [None]
  - DYSPHONIA [None]
